FAERS Safety Report 8383353-1 (Version None)
Quarter: 2012Q2

REPORT INFORMATION
  Report Type: 
  Country: None (occurrence: None)
  Receive Date: 20120524
  Receipt Date: 20120510
  Transmission Date: 20120825
  Serious: Yes (Other)
  Sender: FDA-Public Use
  Company Number: US-JNJFOC-20120307604

PATIENT
  Sex: Female

DRUGS (3)
  1. ANTACIDS [Concomitant]
     Route: 065
  2. LEVAQUIN [Suspect]
     Indication: SINUSITIS
     Dosage: INITIATED AROUND 06-JAN-2012, FOR 28 DAYS
     Route: 065
     Dates: start: 20120101
  3. RYTHMOL [Suspect]
     Indication: PRODUCT USED FOR UNKNOWN INDICATION
     Route: 065

REACTIONS (2)
  - ASTHENIA [None]
  - ATRIAL FIBRILLATION [None]
